FAERS Safety Report 8257539-0 (Version None)
Quarter: 2012Q1

REPORT INFORMATION
  Report Type: 
  Country: None (occurrence: None)
  Receive Date: 20120330
  Receipt Date: 20120330
  Transmission Date: 20120608
  Serious: No
  Sender: FDA-Public Use
  Company Number: None

PATIENT
  Age: 56 Year
  Sex: Female
  Weight: 99.7913 kg

DRUGS (2)
  1. PRAMIPEXOLE DIHYDROCHLORIDE [Suspect]
     Indication: RESTLESS LEGS SYNDROME
     Dosage: PRAMIPEXOLE .05  8 PM
  2. PRAMIPEXOLE DIHYDROCHLORIDE [Suspect]
     Indication: PERIODIC LIMB MOVEMENT DISORDER
     Dosage: PRAMIPEXOLE .05  8 PM

REACTIONS (1)
  - ALOPECIA [None]
